FAERS Safety Report 6029676-2 (Version None)
Quarter: 2009Q1

REPORT INFORMATION
  Report Type: 
  Country: None (occurrence: None)
  Receive Date: 20090107
  Receipt Date: 20081226
  Transmission Date: 20090719
  Serious: Yes (Other)
  Sender: FDA-Public Use
  Company Number: JP-PFIZER INC-2008160096

PATIENT

DRUGS (3)
  1. DOXORUBICIN HCL [Suspect]
     Indication: NEUROBLASTOMA
     Route: 042
  2. IFOMIDE [Suspect]
     Indication: NEUROBLASTOMA
     Route: 042
  3. ENDOXAN [Suspect]
     Indication: NEUROBLASTOMA
     Route: 042

REACTIONS (1)
  - FRACTURE [None]
